FAERS Safety Report 17361867 (Version 3)
Quarter: 2020Q3

REPORT INFORMATION
  Report Type: Report from Study
  Country: US (occurrence: US)
  Receive Date: 20200203
  Receipt Date: 20200917
  Transmission Date: 20201104
  Serious: Yes (Death, Hospitalization)
  Sender: FDA-Public Use
  Company Number: US-PFIZER INC-2020038392

PATIENT
  Age: 72 Year
  Sex: Male
  Weight: 94 kg

DRUGS (19)
  1. CALCIUM [Concomitant]
     Active Substance: CALCIUM
     Dosage: UNK UNK, 1X/DAY
     Route: 048
  2. VITAMIN D3 [Concomitant]
     Active Substance: CHOLECALCIFEROL
     Dosage: UNK UNK, 1X/DAY
     Route: 058
  3. SINGULAIR [Concomitant]
     Active Substance: MONTELUKAST SODIUM
     Dosage: 1 DF, 1X/DAY
     Route: 048
  4. LYRICA [Concomitant]
     Active Substance: PREGABALIN
     Dosage: 100 MG, 3X/DAY
     Route: 048
     Dates: start: 20191216, end: 20200114
  5. TEMOZOLOMIDE. [Suspect]
     Active Substance: TEMOZOLOMIDE
     Dosage: 1 MG, 1X/DAY (3 CAPS)
     Route: 048
     Dates: start: 20200103, end: 20200109
  6. PF?06755990 DNA PLASMID [Suspect]
     Active Substance: INVESTIGATIONAL PRODUCT
     Indication: PROSTATE CANCER
     Dosage: 50 MG, CYCLIC (DAY 29 OF CYCLE1 AND 2, THEN EVERY 4 WEEKS THEN, EVERY 2 MONTHS DURING MAINTENANCE)
     Route: 030
     Dates: start: 20190305, end: 20191212
  7. COENZYME Q10 [Concomitant]
     Active Substance: DIETARY SUPPLEMENT\UBIDECARENONE
     Dosage: (COQID) 300 MG, 1X/DAY
     Route: 048
  8. TALAZOPARIB. [Suspect]
     Active Substance: TALAZOPARIB
     Indication: PROSTATE CANCER
     Dosage: 1 MG, 1X/DAY
     Route: 048
     Dates: start: 20200102, end: 20200107
  9. AMLODIPINE [Concomitant]
     Active Substance: AMLODIPINE BESYLATE
     Dosage: 5 MG, 1X/DAY
     Route: 048
  10. XGEVA [Concomitant]
     Active Substance: DENOSUMAB
     Dosage: 120 MG (1.7 ML), EVERY 3 MONTHS
     Route: 058
     Dates: start: 20180102
  11. ZYRTEC [Concomitant]
     Active Substance: CETIRIZINE HYDROCHLORIDE
     Dosage: UNK UNK, AS NEEDED
     Route: 048
  12. MAGNESIUM [Concomitant]
     Active Substance: MAGNESIUM
     Dosage: UNK UNK, 1X/DAY
     Route: 048
  13. PF?06755992 ADENOVIRUS [Suspect]
     Active Substance: INVESTIGATIONAL PRODUCT
     Indication: PROSTATE CANCER
     Dosage: 6X10E11 VP (VIRAL PARTICLE), DAY 1 EVERY 16 WEEKS CYCLE 1 AND 2
     Route: 030
     Dates: start: 20190305, end: 20190625
  14. LEUPROLIDE [LEUPRORELIN] [Concomitant]
     Active Substance: LEUPROLIDE ACETATE
     Dosage: 22.5 MG, EVERY 3 MONTHS
     Route: 030
     Dates: start: 20190226
  15. HALOBETASOL [Concomitant]
     Active Substance: HALOBETASOL PROPIONATE
     Dosage: 0.05 %, 2X/DAY
     Route: 061
     Dates: start: 20191107
  16. PF?06801591 [Suspect]
     Active Substance: SASANLIMAB
     Indication: PROSTATE CANCER
     Dosage: 300 MG, MONTHLY (EVERY 4 WEEKS)
     Route: 058
     Dates: start: 20190305, end: 20191212
  17. PSORIASIN [COAL TAR] [Concomitant]
     Dosage: 2 %, 1X/DAY
     Route: 061
  18. TREMELIMUMAB. [Suspect]
     Active Substance: TREMELIMUMAB
     Indication: PROSTATE CANCER
     Dosage: 80 MG, CYCLIC (EVERY 4 WEEKS CYCLE 1 AND 2 THEN EVERY 2 MONTHS DURING MAINTENANCE)
     Route: 058
     Dates: start: 20190305, end: 20191212
  19. TRIGRID DELIVERY SYSTEM [Suspect]
     Active Substance: DEVICE

REACTIONS (4)
  - Febrile neutropenia [Recovered/Resolved with Sequelae]
  - Thrombocytopenia [Recovered/Resolved with Sequelae]
  - Leukopenia [Recovered/Resolved with Sequelae]
  - Anaemia [Recovered/Resolved with Sequelae]

NARRATIVE: CASE EVENT DATE: 20200124
